FAERS Safety Report 7649636-5 (Version None)
Quarter: 2011Q3

REPORT INFORMATION
  Report Type: 
  Country: None (occurrence: None)
  Receive Date: 20110802
  Receipt Date: 20110719
  Transmission Date: 20111222
  Serious: Yes (Disabling, Other)
  Sender: FDA-Public Use
  Company Number: US-PFIZER INC-US-WYE-H04864908

PATIENT
  Sex: Female
  Weight: 113.3 kg

DRUGS (4)
  1. XANAX [Concomitant]
     Indication: DEPRESSION
     Dosage: UNK
     Dates: start: 19950101
  2. XANAX [Concomitant]
     Indication: ANXIETY
  3. PREMPRO [Suspect]
     Indication: HORMONE REPLACEMENT THERAPY
     Dosage: UNK
     Route: 048
     Dates: start: 19960112, end: 20010112
  4. ZOLOFT [Concomitant]
     Indication: DEPRESSION
     Dosage: UNK
     Dates: start: 19950101

REACTIONS (1)
  - BREAST CANCER FEMALE [None]
